FAERS Safety Report 21984827 (Version 1)
Quarter: 2023Q1

REPORT INFORMATION
  Report Type: Other
  Country: AR (occurrence: None)
  Receive Date: 20230213
  Receipt Date: 20230213
  Transmission Date: 20230418
  Serious: Yes (Other)
  Sender: FDA-Public Use
  Company Number: AR-ROCHE-3279984

PATIENT
  Age: 3 Year
  Sex: Male

DRUGS (7)
  1. VEMURAFENIB [Suspect]
     Active Substance: VEMURAFENIB
     Indication: Langerhans^ cell histiocytosis
     Route: 065
  2. PREDNISONE [Concomitant]
     Active Substance: PREDNISONE
  3. VINBLASTINE [Concomitant]
     Active Substance: VINBLASTINE
  4. VINCRISTINE [Concomitant]
     Active Substance: VINCRISTINE
  5. CLADRIBINE [Concomitant]
     Active Substance: CLADRIBINE
  6. CYTARABINE [Concomitant]
     Active Substance: CYTARABINE
     Dosage: 5 DAY
  7. CLOFARABINE [Concomitant]
     Active Substance: CLOFARABINE
     Dosage: 5 DAY

REACTIONS (1)
  - Acute myeloid leukaemia [Unknown]
